FAERS Safety Report 17710309 (Version 2)
Quarter: 2020Q4

REPORT INFORMATION
  Report Type: Other
  Country: ES (occurrence: ES)
  Receive Date: 20200427
  Receipt Date: 20201015
  Transmission Date: 20210113
  Serious: Yes (Hospitalization, Other)
  Sender: FDA-Public Use
  Company Number: ES-DENTSPLY-2020SCDP000148

PATIENT
  Age: 39 Year
  Sex: Female

DRUGS (3)
  1. NOLOTIL [METAMIZOLE MAGNESIUM] [Suspect]
     Active Substance: METAMIZOLE MAGNESIUM
     Indication: PAIN
     Dosage: 6 GRAM TOTAL, NOLOTIL 0.4 G / ML INJECTABLE AND INFUSION SOLUTION, 5 AMPOULES OF 5 ML (3 BLISTERS IN
     Route: 065
     Dates: start: 20190206, end: 20190210
  2. MEPIVACAINE [Suspect]
     Active Substance: MEPIVACAINE HYDROCHLORIDE
     Indication: DENTAL OPERATION
     Dosage: SP
     Dates: start: 20180625, end: 20180625
  3. IBUPROFEN. [Suspect]
     Active Substance: IBUPROFEN
     Indication: PAIN
     Dosage: 600 MILLIGRAM, QID, 600MG EVERY 8 HOURS
     Route: 048
     Dates: start: 20190206, end: 20190210

REACTIONS (1)
  - Hepatic failure [Recovered/Resolved]

NARRATIVE: CASE EVENT DATE: 20190308
